FAERS Safety Report 6143860-9 (Version None)
Quarter: 2009Q2

REPORT INFORMATION
  Report Type: 
  Country: None (occurrence: None)
  Receive Date: 20090403
  Receipt Date: 20090320
  Transmission Date: 20091009
  Serious: Yes (Hospitalization)
  Sender: FDA-Public Use
  Company Number: NL-GENENTECH-280085

PATIENT
  Sex: Female

DRUGS (3)
  1. BEVACIZUMAB [Suspect]
     Indication: COLORECTAL CANCER
     Dosage: 510 UNK, QD
     Route: 042
     Dates: start: 20090130
  2. CAPECITABINE [Suspect]
     Indication: COLORECTAL CANCER
     Dosage: 2600 UNK, QD
     Route: 048
     Dates: start: 20090130
  3. OXALIPLATIN [Suspect]
     Indication: COLORECTAL CANCER
     Dosage: 165 UNK, QD
     Route: 042
     Dates: start: 20090130

REACTIONS (2)
  - ABDOMINAL PAIN [None]
  - FAECALOMA [None]
